FAERS Safety Report 8421871-8 (Version None)
Quarter: 2012Q2

REPORT INFORMATION
  Report Type: 
  Country: None (occurrence: None)
  Receive Date: 20120608
  Receipt Date: 20120605
  Transmission Date: 20120825
  Serious: No
  Sender: FDA-Public Use
  Company Number: US-PFIZER INC-2012104204

PATIENT
  Sex: Female

DRUGS (5)
  1. CELEBREX [Suspect]
     Dosage: UNK
  2. LIPITOR [Suspect]
     Dosage: UNK
  3. NORVASC [Suspect]
     Dosage: UNK
  4. LYRICA [Suspect]
     Indication: ARTHRALGIA
     Dosage: UNK
  5. LYRICA [Suspect]
     Indication: BACK PAIN

REACTIONS (4)
  - BACK PAIN [None]
  - NERVOUSNESS [None]
  - INSOMNIA [None]
  - ARTHRALGIA [None]
